FAERS Safety Report 4883289-4 (Version None)
Quarter: 2006Q1

REPORT INFORMATION
  Report Type: 
  Country: None (occurrence: None)
  Receive Date: 20060117
  Receipt Date: 20060117
  Transmission Date: 20060701
  Serious: No
  Sender: FDA-Public Use
  Company Number: None

PATIENT
  Sex: Male
  Weight: 114 kg

DRUGS (1)
  1. PHENYTOIN [Suspect]
     Dosage: 300MG QHS PO
     Route: 048
     Dates: start: 20051205, end: 20051215

REACTIONS (1)
  - RASH GENERALISED [None]
